FAERS Safety Report 6289999-9 (Version None)
Quarter: 2009Q3

REPORT INFORMATION
  Report Type: 
  Country: None (occurrence: None)
  Receive Date: 20090730
  Receipt Date: 20081020
  Transmission Date: 20100115
  Serious: No
  Sender: FDA-Public Use
  Company Number: US-BRISTOL-MYERS SQUIBB COMPANY-14376396

PATIENT
  Age: 33 Year
  Sex: Female
  Weight: 97 kg

DRUGS (2)
  1. COUMADIN [Suspect]
     Indication: DEEP VEIN THROMBOSIS
     Dosage: 1 DOSAGE FORM=7MG,4DAYS A WEEK;6MG,3DAYS A WEEK.
     Dates: start: 20080905
  2. KLONOPIN [Concomitant]

REACTIONS (1)
  - ALOPECIA [None]
